FAERS Safety Report 14369345 (Version 2)
Quarter: 2018Q1

REPORT INFORMATION
  Report Type: Spontaneous
  Country: AU (occurrence: AU)
  Receive Date: 20180109
  Receipt Date: 20180126
  Transmission Date: 20180509
  Serious: Yes (Other)
  Sender: FDA-Public Use
  Company Number: AU-BAXTER-2017BAX046211

PATIENT
  Age: 6 Year
  Sex: Female

DRUGS (7)
  1. ACICLOVIR [Concomitant]
     Active Substance: ACYCLOVIR
     Indication: ANTIBIOTIC THERAPY
     Route: 065
  2. ROXITHROMYCIN [Concomitant]
     Active Substance: ROXITHROMYCIN
     Indication: EVIDENCE BASED TREATMENT
     Route: 065
  3. CEFTRIAXONE. [Concomitant]
     Active Substance: CEFTRIAXONE
     Indication: ANTIBIOTIC THERAPY
     Route: 065
  4. ROXITHROMYCIN [Concomitant]
     Active Substance: ROXITHROMYCIN
     Indication: ANTIBIOTIC THERAPY
  5. FLUCLOXACILLIN [Concomitant]
     Active Substance: FLUCLOXACILLIN
     Indication: ANTIBIOTIC THERAPY
     Route: 065
  6. MIDAZOLAM-CLARIS [Suspect]
     Active Substance: MIDAZOLAM HYDROCHLORIDE
     Indication: GENERAL ANAESTHESIA
     Route: 065
  7. PHENYTOIN. [Concomitant]
     Active Substance: PHENYTOIN
     Indication: SEIZURE
     Route: 065

REACTIONS (1)
  - Meningeal disorder [Recovered/Resolved]
